FAERS Safety Report 25406096 (Version 1)
Quarter: 2025Q2

REPORT INFORMATION
  Report Type: Spontaneous
  Country: US (occurrence: US)
  Receive Date: 20250606
  Receipt Date: 20250606
  Transmission Date: 20250716
  Serious: No
  Sender: AVKARE
  Company Number: US-AvKARE-2178152

PATIENT
  Sex: Female

DRUGS (1)
  1. POLYVINYL ALCOHOL [Suspect]
     Active Substance: POLYVINYL ALCOHOL

REACTIONS (1)
  - Eye irritation [Unknown]
